FAERS Safety Report 17133379 (Version 1)
Quarter: 2019Q4

REPORT INFORMATION
  Report Type: Spontaneous
  Country: GB (occurrence: GB)
  Receive Date: 20191210
  Receipt Date: 20191210
  Transmission Date: 20200122
  Serious: Yes (Other)
  Sender: FDA-Public Use
  Company Number: GB-COLGATE PALMOLIVE COMPANY-20191202983

PATIENT

DRUGS (3)
  1. PEROXYL MOUTHWASH [Suspect]
     Active Substance: HYDROGEN PEROXIDE
     Indication: GINGIVAL DISCOMFORT
     Route: 048
     Dates: start: 20191117, end: 20191120
  2. AMITRIPTYLINE [Concomitant]
     Active Substance: AMITRIPTYLINE
     Dosage: 25 MILLIGRAM
  3. CITALOPRAM [Concomitant]
     Active Substance: CITALOPRAM HYDROBROMIDE
     Dosage: 20 MILLIGRAM

REACTIONS (6)
  - Burning sensation [Recovering/Resolving]
  - Palatal swelling [Recovering/Resolving]
  - Hypoaesthesia oral [Recovering/Resolving]
  - Swollen tongue [Recovering/Resolving]
  - Oral pain [Recovering/Resolving]
  - Gingival swelling [Recovering/Resolving]

NARRATIVE: CASE EVENT DATE: 20191117
